FAERS Safety Report 9621078 (Version 2)
Quarter: 2013Q4

REPORT INFORMATION
  Report Type: Report from Study
  Country: US (occurrence: US)
  Receive Date: 20131015
  Receipt Date: 20131015
  Transmission Date: 20140711
  Serious: Yes (Death, Life-Threatening, Hospitalization, Other)
  Sender: FDA-Public Use
  Company Number: US-ASTELLAS-2013US010527

PATIENT
  Age: 44 Year
  Sex: Female
  Weight: 60 kg

DRUGS (28)
  1. ERLOTINIB TABLET [Suspect]
     Indication: ACUTE MYELOID LEUKAEMIA
     Dosage: UNK
     Route: 065
     Dates: start: 20130911
  2. COLISTIN [Suspect]
     Indication: ANTIBIOTIC THERAPY
     Dosage: UNK
     Route: 065
  3. BACTRIM [Suspect]
     Indication: ANTIBIOTIC THERAPY
     Dosage: UNK
     Route: 065
  4. AMBISOME [Concomitant]
     Indication: PRODUCT USED FOR UNKNOWN INDICATION
     Dosage: UNK
     Route: 065
  5. ZOFRAN                             /00955301/ [Concomitant]
     Indication: NAUSEA
     Dosage: 8 MG, PRN
     Route: 048
  6. ZOFRAN                             /00955301/ [Concomitant]
     Indication: VOMITING
  7. OXYCODONE [Concomitant]
     Indication: PAIN
     Dosage: 10 MG, PRN
     Route: 048
  8. COMPAZINE                          /00013304/ [Concomitant]
     Indication: NAUSEA
     Dosage: 10 MG, PRN
     Route: 048
  9. COMPAZINE                          /00013304/ [Concomitant]
     Indication: VOMITING
  10. ALLOPURINOL [Concomitant]
     Indication: BLOOD URIC ACID
     Dosage: 300 MG, UID/QD
     Route: 048
  11. DURAGESIC                          /00174601/ [Concomitant]
     Indication: PAIN
     Dosage: 75 UG, Q3D
     Route: 061
  12. HYDREA [Concomitant]
     Indication: WHITE BLOOD CELL COUNT
     Dosage: 1000 MG, UID/QD
     Route: 048
  13. FLAGYL                             /00012501/ [Concomitant]
     Indication: ANTIBIOTIC THERAPY
     Dosage: 500 MG, TID
     Route: 048
  14. ONE A DAY WOMEN^S [Concomitant]
     Indication: SUPPLEMENTATION THERAPY
     Dosage: 1 DF, UID/QD
     Route: 048
  15. POTASSIUM CHLORIDE [Concomitant]
     Indication: MINERAL SUPPLEMENTATION
     Dosage: 20 MEQ, BID
     Route: 048
  16. DOCUSATE W/SENNOSIDE A+B [Concomitant]
     Indication: CONSTIPATION
     Dosage: 1-2 TABLETS
     Route: 048
  17. VALTREX [Concomitant]
     Indication: ANTIVIRAL TREATMENT
     Dosage: 500 MG, UID/QD
     Route: 048
  18. NILOTINIB [Concomitant]
     Indication: PRODUCT USED FOR UNKNOWN INDICATION
     Dosage: 150 MG, UNKNOWN/D
     Route: 065
     Dates: start: 20130911
  19. ZYVOX [Concomitant]
     Indication: PRODUCT USED FOR UNKNOWN INDICATION
     Dosage: UNK
     Route: 065
  20. DAPTOMYCIN [Concomitant]
     Indication: PRODUCT USED FOR UNKNOWN INDICATION
     Dosage: UNK
     Route: 065
  21. MERREM [Concomitant]
     Indication: PRODUCT USED FOR UNKNOWN INDICATION
     Dosage: UNK
     Route: 065
  22. CIPRO                              /00697201/ [Concomitant]
     Indication: PRODUCT USED FOR UNKNOWN INDICATION
     Dosage: UNK
     Route: 065
  23. AMIKACIN [Concomitant]
     Indication: PRODUCT USED FOR UNKNOWN INDICATION
     Dosage: UNK
     Route: 065
  24. TIGECYCLINE [Concomitant]
     Indication: PRODUCT USED FOR UNKNOWN INDICATION
     Dosage: UNK
     Route: 065
  25. GANCICLOVIR [Concomitant]
     Indication: PRODUCT USED FOR UNKNOWN INDICATION
     Dosage: UNK
     Route: 065
  26. CASPOFUNGIN [Concomitant]
     Indication: PRODUCT USED FOR UNKNOWN INDICATION
     Dosage: UNK
     Route: 065
  27. ACYCLOVIR                          /00587301/ [Concomitant]
     Indication: PRODUCT USED FOR UNKNOWN INDICATION
     Dosage: UNK
     Route: 065
  28. VORICONAZOLE [Concomitant]
     Indication: PRODUCT USED FOR UNKNOWN INDICATION
     Dosage: UNK
     Route: 065

REACTIONS (15)
  - Off label use [Unknown]
  - Convulsion [Unknown]
  - Cardiomyopathy [Unknown]
  - Haemorrhage intracranial [Unknown]
  - Pancytopenia [Unknown]
  - Pneumonia pseudomonal [Unknown]
  - Renal failure acute [Unknown]
  - Ecchymosis [Unknown]
  - Ejection fraction decreased [Unknown]
  - Coagulopathy [Unknown]
  - Cytomegalovirus test [Unknown]
  - Oedema [Unknown]
  - Cellulitis [Unknown]
  - Respiratory failure [Fatal]
  - Septic shock [Unknown]
